FAERS Safety Report 26211532 (Version 1)
Quarter: 2025Q4

REPORT INFORMATION
  Report Type: Spontaneous
  Country: US (occurrence: None)
  Receive Date: 20251230
  Receipt Date: 20251230
  Transmission Date: 20260118
  Serious: Yes (Other)
  Sender: UCB
  Company Number: US-UCBSA-2025082413

PATIENT
  Age: 53 Year

DRUGS (2)
  1. CIMZIA [Suspect]
     Active Substance: CERTOLIZUMAB PEGOL
     Indication: Rheumatoid arthritis
     Dosage: 200 MILLIGRAM, EV 2 WEEKS(QOW)
  2. RINVOQ [Concomitant]
     Active Substance: UPADACITINIB
     Indication: Product used for unknown indication

REACTIONS (1)
  - Rheumatoid arthritis [Unknown]
